FAERS Safety Report 4964162-X (Version None)
Quarter: 2006Q1

REPORT INFORMATION
  Report Type: 
  Country: None (occurrence: None)
  Receive Date: 20060331
  Receipt Date: 20060315
  Transmission Date: 20060701
  Serious: Yes (Life-Threatening, Hospitalization)
  Sender: FDA-Public Use
  Company Number: T06-UKI-01264-01

PATIENT
  Age: 69 Year
  Sex: Male

DRUGS (2)
  1. ESCITALOPRAM OXALATE [Suspect]
     Indication: URINARY TRACT DISORDER
     Dosage: 10 MG QD PO
     Route: 048
     Dates: start: 20060302
  2. OMEPRAZOLE [Concomitant]

REACTIONS (1)
  - CEREBRAL HAEMORRHAGE [None]
